FAERS Safety Report 4546363-8 (Version None)
Quarter: 2005Q1

REPORT INFORMATION
  Report Type: 
  Country: None (occurrence: None)
  Receive Date: 20050103
  Receipt Date: 20041222
  Transmission Date: 20050727
  Serious: Yes (Other)
  Sender: FDA-Public Use
  Company Number: 2004118895

PATIENT
  Age: 63 Year
  Sex: Male

DRUGS (3)
  1. NORVASC [Suspect]
     Indication: ILL-DEFINED DISORDER
     Dosage: 5 MG, ORAL
     Route: 048
     Dates: start: 19960101, end: 20040101
  2. CARDENALIN (DOXAZOSIN) [Suspect]
     Indication: ILL-DEFINED DISORDER
     Dosage: 2 MG, ORAL
     Route: 048
     Dates: start: 20020101, end: 20040101
  3. CANDESARTAN CILEXETIL             (CANDESARTAN CILEXETIL) [Suspect]
     Indication: ILL-DEFINED DISORDER
     Dosage: 8 MG, ORAL
     Route: 048
     Dates: start: 20020101, end: 20040101

REACTIONS (2)
  - ALCOHOL USE [None]
  - CONVULSION [None]
